FAERS Safety Report 5285986-8 (Version None)
Quarter: 2007Q1

REPORT INFORMATION
  Report Type: 
  Country: None (occurrence: None)
  Receive Date: 20070328
  Receipt Date: 20070314
  Transmission Date: 20070707
  Serious: Yes (Hospitalization)
  Sender: FDA-Public Use
  Company Number: US-CVT-070062

PATIENT
  Sex: Male

DRUGS (8)
  1. RANEXA [Suspect]
     Indication: ANGINA PECTORIS
     Dosage: SEE IMAGE
     Route: 048
     Dates: start: 20070202, end: 20070214
  2. RANEXA [Suspect]
     Indication: ANGINA PECTORIS
     Dosage: SEE IMAGE
     Route: 048
     Dates: start: 20070214, end: 20070216
  3. RANEXA [Suspect]
     Indication: ANGINA PECTORIS
     Dosage: SEE IMAGE
     Route: 048
     Dates: start: 20070214, end: 20070216
  4. TOPROL-XL [Concomitant]
  5. NORVASC /0097240/ (AMLODIPINE) [Concomitant]
  6. HYZAAR (HYDROCHLOROTHIAZIDE, LOSARTMAN POTASSIUM) [Concomitant]
  7. COUMADIN [Concomitant]
  8. COREG (CARVEDIOLOL) [Concomitant]

REACTIONS (9)
  - ABASIA [None]
  - ASTHENIA [None]
  - CHEST PAIN [None]
  - DIALYSIS [None]
  - DRUG INTOLERANCE [None]
  - FLUID RETENTION [None]
  - INTERNATIONAL NORMALISED RATIO INCREASED [None]
  - RENAL FAILURE [None]
  - VISION BLURRED [None]
